FAERS Safety Report 12936207 (Version 1)
Quarter: 2016Q4

REPORT INFORMATION
  Report Type: Spontaneous
  Country: CH (occurrence: CH)
  Receive Date: 20161114
  Receipt Date: 20161114
  Transmission Date: 20170207
  Serious: Yes (Other)
  Sender: FDA-Public Use
  Company Number: PHHY2016CH154599

PATIENT
  Age: 73 Year
  Sex: Female

DRUGS (2)
  1. AFINITOR [Suspect]
     Active Substance: EVEROLIMUS
     Indication: BREAST CANCER
     Dosage: 5 MG, UNK
     Route: 065
     Dates: start: 201501
  2. EXEMESTANE. [Suspect]
     Active Substance: EXEMESTANE
     Indication: BREAST CANCER
     Dosage: UNK
     Route: 065
     Dates: start: 201501

REACTIONS (22)
  - Neutropenia [Unknown]
  - Productive cough [Unknown]
  - Haemoglobin decreased [Unknown]
  - Diverticulitis [Unknown]
  - C-reactive protein increased [Unknown]
  - Red blood cell count decreased [Unknown]
  - Granulocyte count decreased [Unknown]
  - Blood creatinine increased [Unknown]
  - Blood potassium decreased [Unknown]
  - Pneumonitis [Unknown]
  - Haematocrit decreased [Unknown]
  - Fatigue [Unknown]
  - White blood cell count decreased [Unknown]
  - Low density lipoprotein increased [Unknown]
  - Blood chloride increased [Unknown]
  - Blood cholesterol increased [Unknown]
  - Monocyte percentage increased [Unknown]
  - Blood lactate dehydrogenase increased [Unknown]
  - Mouth ulceration [Unknown]
  - Malignant neoplasm progression [Unknown]
  - Cough [Unknown]
  - Lymphocyte count decreased [Unknown]

NARRATIVE: CASE EVENT DATE: 201501
